FAERS Safety Report 4345839-6 (Version None)
Quarter: 2004Q2

REPORT INFORMATION
  Report Type: 
  Country: None (occurrence: None)
  Receive Date: 20040421
  Receipt Date: 20040414
  Transmission Date: 20050107
  Serious: Yes (Hospitalization)
  Sender: FDA-Public Use
  Company Number: 2003-07-0433

PATIENT
  Age: 52 Year
  Sex: Male
  Weight: 63 kg

DRUGS (8)
  1. REBETOL [Suspect]
     Indication: HEPATITIS C
     Dosage: SEE IMAGE
     Route: 048
     Dates: start: 20030415, end: 20030429
  2. REBETOL [Suspect]
     Indication: HEPATITIS C
     Dosage: SEE IMAGE
     Route: 048
     Dates: start: 20030415, end: 20030615
  3. REBETOL [Suspect]
     Indication: HEPATITIS C
     Dosage: SEE IMAGE
     Route: 048
     Dates: start: 20030430, end: 20030615
  4. INTRON A [Suspect]
     Indication: HEPATITIS C
     Dosage: SEE IMAGE
     Route: 030
     Dates: start: 20030415, end: 20030428
  5. INTRON A [Suspect]
     Indication: HEPATITIS C
     Dosage: SEE IMAGE
     Route: 030
     Dates: start: 20030415, end: 20030613
  6. INTRON A [Suspect]
     Indication: HEPATITIS C
     Dosage: SEE IMAGE
     Route: 030
     Dates: start: 20030430, end: 20030616
  7. VOLTAREN [Concomitant]
  8. THYRADIN [Concomitant]

REACTIONS (3)
  - FACIAL PALSY [None]
  - HYPOTHYROIDISM [None]
  - PYREXIA [None]
